FAERS Safety Report 24153338 (Version 1)
Quarter: 2024Q3

REPORT INFORMATION
  Report Type: Spontaneous
  Country: US (occurrence: None)
  Receive Date: 20240730
  Receipt Date: 20240730
  Transmission Date: 20241017
  Serious: Yes (Hospitalization, Other)
  Sender: Public
  Company Number: None

PATIENT
  Age: 74 Year
  Sex: Female
  Weight: 70 kg

DRUGS (1)
  1. CARVYKTI [Suspect]
     Active Substance: CILTACABTAGENE AUTOLEUCEL

REACTIONS (3)
  - Infusion related reaction [None]
  - Immune effector cell-associated neurotoxicity syndrome [None]
  - Toxicity to various agents [None]

NARRATIVE: CASE EVENT DATE: 20240629
